FAERS Safety Report 6943458-6 (Version None)
Quarter: 2010Q3

REPORT INFORMATION
  Report Type: 
  Country: None (occurrence: None)
  Receive Date: 20100826
  Receipt Date: 20100818
  Transmission Date: 20110219
  Serious: Yes (Hospitalization)
  Sender: FDA-Public Use
  Company Number: JP-ABBOTT-10P-087-0665640-00

PATIENT
  Age: 2 Month
  Sex: Male

DRUGS (3)
  1. SEVOFLURANE [Suspect]
     Indication: ANAESTHESIA
     Route: 065
  2. ATROPINE SULFATE [Concomitant]
     Indication: ANAESTHESIA
     Route: 065
  3. THIAMYLAL SODIUM [Concomitant]
     Indication: ANAESTHESIA
     Route: 065

REACTIONS (1)
  - ILEUS PARALYTIC [None]
